FAERS Safety Report 24164622 (Version 1)
Quarter: 2024Q3

REPORT INFORMATION
  Report Type: Spontaneous
  Country: AU (occurrence: AU)
  Receive Date: 20240801
  Receipt Date: 20240801
  Transmission Date: 20241017
  Serious: Yes (Death)
  Sender: ELI LILLY AND CO
  Company Number: AU-ELI_LILLY_AND_COMPANY-AU202407017487

PATIENT
  Age: 27 Year
  Sex: Male

DRUGS (1)
  1. BARICITINIB [Suspect]
     Active Substance: BARICITINIB
     Indication: Alopecia
     Dosage: 2 MG, DAILY
     Route: 065

REACTIONS (1)
  - Glioblastoma [Fatal]

NARRATIVE: CASE EVENT DATE: 20231219
